FAERS Safety Report 23506069 (Version 1)
Quarter: 2024Q1

REPORT INFORMATION
  Report Type: Spontaneous
  Country: DE (occurrence: DE)
  Receive Date: 20240209
  Receipt Date: 20240209
  Transmission Date: 20240409
  Serious: Yes (Life-Threatening, Hospitalization)
  Sender: FDA-Public Use
  Company Number: DE-STRIDES ARCOLAB LIMITED-2024SP001386

PATIENT
  Age: 82 Year
  Sex: Female

DRUGS (4)
  1. METHOTREXATE [Interacting]
     Active Substance: METHOTREXATE
     Indication: Myositis
     Dosage: 15 MILLIGRAM PER WEEK
     Route: 065
  2. TORSEMIDE [Interacting]
     Active Substance: TORSEMIDE
     Indication: Diuretic therapy
     Dosage: UNK
     Route: 065
  3. PANTOPRAZOLE [Interacting]
     Active Substance: PANTOPRAZOLE
     Indication: Product used for unknown indication
     Dosage: UNK
     Route: 065
  4. CANDESARTAN CILEXETIL [Concomitant]
     Active Substance: CANDESARTAN CILEXETIL
     Indication: Product used for unknown indication
     Dosage: UNK
     Route: 065

REACTIONS (7)
  - Drug interaction [Unknown]
  - Mucosal inflammation [Recovered/Resolved]
  - Myelosuppression [Recovered/Resolved]
  - Leukopenia [Recovered/Resolved]
  - Thrombocytopenia [Recovered/Resolved]
  - Toxicity to various agents [Unknown]
  - Off label use [Unknown]
